APPROVED DRUG PRODUCT: NICOTINE POLACRILEX
Active Ingredient: NICOTINE POLACRILEX
Strength: EQ 4MG BASE
Dosage Form/Route: GUM, CHEWING;BUCCAL
Application: A079219 | Product #001
Applicant: P AND L DEVELOPMENT LLC
Approved: Jul 8, 2009 | RLD: No | RS: No | Type: OTC